FAERS Safety Report 7854577-4 (Version None)
Quarter: 2011Q4

REPORT INFORMATION
  Report Type: 
  Country: None (occurrence: None)
  Receive Date: 20111026
  Receipt Date: 20111019
  Transmission Date: 20120403
  Serious: Yes (Hospitalization, Other)
  Sender: FDA-Public Use
  Company Number: US-BAYER-2011-047552

PATIENT
  Sex: Male

DRUGS (16)
  1. SPIRIVA [Concomitant]
  2. XANAX [Concomitant]
  3. LISINOPRIL [Concomitant]
  4. SEROQUEL [Concomitant]
  5. THEOPHYLLINE [Concomitant]
  6. FORADIL [Concomitant]
  7. LORATADINE [Concomitant]
  8. SINGULAIR [Concomitant]
  9. DIGOXIN [Concomitant]
  10. FOLIC ACID [Concomitant]
  11. ALBUTEROL [Concomitant]
  12. ASMANEX TWISTHALER [Concomitant]
  13. CARDIAZEM [Concomitant]
  14. OMEPRAZOLE [Concomitant]
  15. AVELOX [Suspect]
     Indication: DYSPNOEA
     Dosage: UNK
     Route: 042
     Dates: start: 20110426
  16. COUMADIN [Concomitant]

REACTIONS (6)
  - FLUSHING [None]
  - CYANOSIS [None]
  - DYSPNOEA [None]
  - ANAPHYLACTIC REACTION [None]
  - RASH [None]
  - RESPIRATORY DISTRESS [None]
